FAERS Safety Report 7669289-X (Version None)
Quarter: 2011Q3

REPORT INFORMATION
  Report Type: 
  Country: None (occurrence: None)
  Receive Date: 20110808
  Receipt Date: 20110729
  Transmission Date: 20111222
  Serious: Yes (Other)
  Sender: FDA-Public Use
  Company Number: PHFR2010GB00927

PATIENT
  Sex: Male

DRUGS (3)
  1. CLOZAPINE [Suspect]
     Indication: SCHIZOPHRENIA
     Route: 048
     Dates: start: 20060106
  2. CLOZAPINE [Suspect]
     Dosage: 200 MG
     Route: 048
  3. LITHIUM CARBONATE [Suspect]
     Dosage: 1200 MG, UNK
     Route: 048

REACTIONS (7)
  - MALAISE [None]
  - DEHYDRATION [None]
  - ANTIPSYCHOTIC DRUG LEVEL INCREASED [None]
  - OVERDOSE [None]
  - ANXIETY [None]
  - PARANOIA [None]
  - PULMONARY EMBOLISM [None]
